FAERS Safety Report 18062491 (Version 1)
Quarter: 2020Q3

REPORT INFORMATION
  Report Type: Spontaneous
  Country: US (occurrence: US)
  Receive Date: 20200723
  Receipt Date: 20200723
  Transmission Date: 20201103
  Serious: No
  Sender: FDA-Public Use
  Company Number: US-IGSA-SR10008921

PATIENT
  Sex: Male

DRUGS (1)
  1. GAMUNEX?C [Suspect]
     Active Substance: HUMAN IMMUNOGLOBULIN G
     Indication: NERVOUS SYSTEM DISORDER
     Dosage: UNK
     Route: 065
     Dates: start: 2018

REACTIONS (2)
  - Suicidal ideation [Unknown]
  - Depressed mood [Unknown]

NARRATIVE: CASE EVENT DATE: 201902
